FAERS Safety Report 23145007 (Version 1)
Quarter: 2023Q4

REPORT INFORMATION
  Report Type: Spontaneous
  Country: KR (occurrence: KR)
  Receive Date: 20231103
  Receipt Date: 20231103
  Transmission Date: 20240110
  Serious: Yes (Other)
  Sender: FDA-Public Use
  Company Number: KR-MYLANLABS-2023M1117039

PATIENT
  Age: 83 Year
  Sex: Female

DRUGS (3)
  1. LIPITOR [Suspect]
     Active Substance: ATORVASTATIN CALCIUM
     Indication: Angina pectoris
     Dosage: 1 DOSAGE FORM, QD
     Route: 065
     Dates: start: 20210527
  2. REBAMIPIDE [Suspect]
     Active Substance: REBAMIPIDE
     Indication: Angina pectoris
     Dosage: 1 DOSAGE FORM, QD
     Route: 065
     Dates: start: 20210527
  3. CLOPIDOGREL BISULFATE [Suspect]
     Active Substance: CLOPIDOGREL BISULFATE
     Indication: Angina pectoris
     Dosage: 1 DOSAGE FORM, QD
     Route: 065
     Dates: start: 20210527

REACTIONS (1)
  - Haematochezia [Unknown]

NARRATIVE: CASE EVENT DATE: 20210527
